FAERS Safety Report 25356229 (Version 1)
Quarter: 2025Q2

REPORT INFORMATION
  Report Type: Spontaneous
  Country: US (occurrence: US)
  Receive Date: 20250526
  Receipt Date: 20250526
  Transmission Date: 20250717
  Serious: Yes (Hospitalization)
  Sender: OXFORD PHARMACEUTICALS, LLC
  Company Number: US-Oxford Pharmaceuticals, LLC-2177475

PATIENT
  Age: 69 Year
  Sex: Female

DRUGS (24)
  1. HYDROCHLOROTHIAZIDE [Suspect]
     Active Substance: HYDROCHLOROTHIAZIDE
     Indication: Hypertension
  2. BUMETANIDE [Suspect]
     Active Substance: BUMETANIDE
  3. CARVEDILOL [Concomitant]
     Active Substance: CARVEDILOL
  4. PRAVASTATIN [Concomitant]
     Active Substance: PRAVASTATIN
  5. ROSUVASTATIN [Concomitant]
     Active Substance: ROSUVASTATIN
  6. PANTOPRAZOLE [Concomitant]
     Active Substance: PANTOPRAZOLE
  7. DOCUSATE [Concomitant]
     Active Substance: DOCUSATE
  8. POTASSIUM [Concomitant]
     Active Substance: POTASSIUM
  9. ONDANSETRON [Concomitant]
     Active Substance: ONDANSETRON
  10. ATORVASTATIN [Concomitant]
     Active Substance: ATORVASTATIN
  11. PREGABALIN [Concomitant]
     Active Substance: PREGABALIN
  12. ISOSORBIDE MONONITRATE [Concomitant]
     Active Substance: ISOSORBIDE MONONITRATE
  13. LINACLOTIDE [Concomitant]
     Active Substance: LINACLOTIDE
  14. INSULIN DEGLUDEC [Concomitant]
     Active Substance: INSULIN DEGLUDEC
  15. SERTRALINE [Concomitant]
     Active Substance: SERTRALINE HYDROCHLORIDE
  16. INSULIN LISPRO [Concomitant]
     Active Substance: INSULIN LISPRO
  17. TRAMADOL [Concomitant]
     Active Substance: TRAMADOL
  18. LACTULOSE [Concomitant]
     Active Substance: LACTULOSE
  19. AMLODIPINE [Suspect]
     Active Substance: AMLODIPINE BESYLATE
  20. FUROSEMIDE [Suspect]
     Active Substance: FUROSEMIDE
  21. ENALAPRIL [Suspect]
     Active Substance: ENALAPRIL
  22. BISOPROLOL FUMARATE AND HYDROCHLOROTHIAZIDE [Suspect]
     Active Substance: BISOPROLOL FUMARATE\HYDROCHLOROTHIAZIDE
  23. IRON SUCROSE [Suspect]
     Active Substance: IRON SUCROSE
  24. HYDRALAZINE [Suspect]
     Active Substance: HYDRALAZINE HYDROCHLORIDE

REACTIONS (1)
  - Gastrointestinal tract mucosal pigmentation [Recovered/Resolved]
